FAERS Safety Report 9117911 (Version 1)
Quarter: 2013Q1

REPORT INFORMATION
  Report Type: Spontaneous
  Country: US (occurrence: US)
  Receive Date: 20130225
  Receipt Date: 20130225
  Transmission Date: 20140127
  Serious: No
  Sender: FDA-Public Use
  Company Number: US-TEVA-387997USA

PATIENT
  Sex: Female

DRUGS (3)
  1. PLAN B ONE-STEP [Suspect]
     Indication: POST COITAL CONTRACEPTION
     Dosage: 1.5 MILLIGRAM DAILY;
     Route: 048
     Dates: start: 20130216, end: 20130216
  2. PAXIL [Concomitant]
     Indication: DEPRESSION
     Dates: start: 2011
  3. XYZAL [Concomitant]
     Indication: SEASONAL ALLERGY
     Dates: start: 2007

REACTIONS (1)
  - Nausea [Recovered/Resolved]
